FAERS Safety Report 10396874 (Version 2)
Quarter: 2015Q1

REPORT INFORMATION
  Report Type: Spontaneous
  Country: US (occurrence: US)
  Receive Date: 20140820
  Receipt Date: 20150330
  Transmission Date: 20150720
  Serious: Yes (Hospitalization, Other)
  Sender: FDA-Public Use
  Company Number: US-BAYER-2014-124121

PATIENT
  Age: 42 Year
  Sex: Female

DRUGS (1)
  1. MIRENA [Suspect]
     Active Substance: LEVONORGESTREL
     Indication: CONTRACEPTION
     Dosage: 20 MCG/24HR, CONT
     Route: 015
     Dates: start: 20100621, end: 20130322

REACTIONS (5)
  - Injury [None]
  - Device dislocation [None]
  - Pelvic pain [None]
  - Uterine perforation [None]
  - Endometriosis [None]

NARRATIVE: CASE EVENT DATE: 20110803
